FAERS Safety Report 4490447-X (Version None)
Quarter: 2004Q4

REPORT INFORMATION
  Report Type: 
  Country: None (occurrence: None)
  Receive Date: 20041028
  Receipt Date: 20041022
  Transmission Date: 20050328
  Serious: Yes (Life-Threatening, Hospitalization)
  Sender: FDA-Public Use
  Company Number: 2004PK01741

PATIENT
  Age: 63 Year
  Sex: Female

DRUGS (3)
  1. IRESSA [Suspect]
     Indication: NON-SMALL CELL LUNG CANCER
     Dosage: 250 MG DAILY PO
     Route: 048
     Dates: start: 20041014, end: 20041017
  2. ALDACTONE [Concomitant]
  3. NORVASC [Concomitant]

REACTIONS (3)
  - DIALYSIS [None]
  - NEOPLASM PROGRESSION [None]
  - RENAL FAILURE ACUTE [None]
